FAERS Safety Report 7077319-1 (Version None)
Quarter: 2010Q4

REPORT INFORMATION
  Report Type: 
  Country: None (occurrence: None)
  Receive Date: 20101022
  Receipt Date: 20101014
  Transmission Date: 20110411
  Serious: Yes (Death, Hospitalization)
  Sender: FDA-Public Use
  Company Number: 2010AC000003

PATIENT
  Age: 68 Year
  Sex: Male

DRUGS (13)
  1. DIGOXIN [Suspect]
     Indication: ATRIAL FIBRILLATION
     Dosage: 0.25 MG;PO
     Route: 048
     Dates: start: 20060215, end: 20080102
  2. METFORMIN HCL [Concomitant]
  3. TAZTIA [Concomitant]
  4. GLYBURIDE [Concomitant]
  5. QUINAPRIL [Concomitant]
  6. PROTONIX [Concomitant]
  7. TRICOR [Concomitant]
  8. VYTORIN [Concomitant]
  9. NITROGLYCERIN [Concomitant]
  10. COUMADIN [Concomitant]
  11. MULTIVITAMIN [Concomitant]
  12. ASPIRIN [Concomitant]
  13. DILTIAZEM [Concomitant]

REACTIONS (12)
  - ATRIAL FIBRILLATION [None]
  - CARDIO-RESPIRATORY ARREST [None]
  - CARDIOMEGALY [None]
  - CAROTID ARTERY STENOSIS [None]
  - ECONOMIC PROBLEM [None]
  - LIPIDS INCREASED [None]
  - MULTIPLE INJURIES [None]
  - MUSCULOSKELETAL PAIN [None]
  - MYOCARDIAL INFARCTION [None]
  - MYOCARDIAL ISCHAEMIA [None]
  - VENTRICULAR EXTRASYSTOLES [None]
  - VENTRICULAR FIBRILLATION [None]
